FAERS Safety Report 9802444 (Version 1)
Quarter: 2014Q1

REPORT INFORMATION
  Report Type: Spontaneous
  Country: US (occurrence: US)
  Receive Date: 20140107
  Receipt Date: 20140107
  Transmission Date: 20141002
  Serious: Yes (Hospitalization)
  Sender: FDA-Public Use
  Company Number: US-ASTRAZENECA-2014SE00103

PATIENT
  Age: 67 Year
  Sex: Female
  Weight: 54.4 kg

DRUGS (13)
  1. SYMBICORT [Suspect]
     Indication: EMPHYSEMA
     Dosage: 160/4.5, 2 PUFFS BID
     Route: 055
  2. LISINOPRIL [Suspect]
     Indication: HYPERTENSION
     Route: 048
  3. VITAMIN D [Concomitant]
     Indication: SUPPLEMENTATION THERAPY
     Dosage: 50000 BIWK
  4. VITAMIN D [Concomitant]
     Indication: SUPPLEMENTATION THERAPY
     Dosage: 50000 MONTH
  5. BUSPIRONE [Concomitant]
  6. OXAZEPAM [Concomitant]
     Indication: ANXIETY
  7. SERTRALINE [Concomitant]
     Indication: DEPRESSION
  8. FOLIC ACID [Concomitant]
  9. HYDROCHOLORTHIAZIDE [Concomitant]
     Dosage: DAILY
  10. VITAMIN B12 [Concomitant]
     Dosage: DAILY
  11. FERROUS SULFATE [Concomitant]
     Dosage: BID
  12. LOW DOSE ASPIRIN [Concomitant]
  13. DALIRESP [Concomitant]
     Indication: ANXIETY
     Dosage: 500MG

REACTIONS (4)
  - Panic attack [Unknown]
  - Dyspnoea [Unknown]
  - Emphysema [Unknown]
  - Drug dose omission [Unknown]
